FAERS Safety Report 21231862 (Version 1)
Quarter: 2022Q3

REPORT INFORMATION
  Report Type: Spontaneous
  Country: US (occurrence: US)
  Receive Date: 20220819
  Receipt Date: 20220819
  Transmission Date: 20221027
  Serious: No
  Sender: FDA-Public Use
  Company Number: US-ELI_LILLY_AND_COMPANY-US202208008710

PATIENT
  Age: 51 Year
  Sex: Female

DRUGS (14)
  1. HUMALOG [Suspect]
     Active Substance: INSULIN LISPRO
     Indication: Gestational diabetes
     Dosage: 15 U, EACH MORNING
     Route: 065
  2. HUMALOG [Suspect]
     Active Substance: INSULIN LISPRO
     Indication: Gestational diabetes
     Dosage: 15 U, EACH MORNING
     Route: 065
  3. HUMALOG [Suspect]
     Active Substance: INSULIN LISPRO
     Dosage: 15 U, OTHER (AT LUNCH)
     Route: 065
  4. HUMALOG [Suspect]
     Active Substance: INSULIN LISPRO
     Dosage: 15 U, OTHER (AT LUNCH)
     Route: 065
  5. HUMALOG [Suspect]
     Active Substance: INSULIN LISPRO
     Dosage: 10 U, EACH EVENING
     Route: 065
  6. HUMALOG [Suspect]
     Active Substance: INSULIN LISPRO
     Dosage: 10 U, EACH EVENING
     Route: 065
  7. HUMALOG [Suspect]
     Active Substance: INSULIN LISPRO
     Dosage: 15 U, EACH MORNING
     Route: 065
     Dates: start: 202201
  8. HUMALOG [Suspect]
     Active Substance: INSULIN LISPRO
     Dosage: 15 U, EACH MORNING
     Route: 065
     Dates: start: 202201
  9. HUMALOG [Suspect]
     Active Substance: INSULIN LISPRO
     Dosage: 15 U, OTHER (AT LUNCH)
     Route: 065
     Dates: start: 202201
  10. HUMALOG [Suspect]
     Active Substance: INSULIN LISPRO
     Dosage: 15 U, OTHER (AT LUNCH)
     Route: 065
     Dates: start: 202201
  11. HUMALOG [Suspect]
     Active Substance: INSULIN LISPRO
     Dosage: 10 U, EACH EVENING
     Route: 065
     Dates: start: 202201
  12. HUMALOG [Suspect]
     Active Substance: INSULIN LISPRO
     Dosage: 10 U, EACH EVENING
     Route: 065
     Dates: start: 202201
  13. OZEMPIC [Concomitant]
     Active Substance: SEMAGLUTIDE
     Indication: Diabetes mellitus
  14. METFORMIN [Concomitant]
     Active Substance: METFORMIN HYDROCHLORIDE
     Indication: Diabetes mellitus

REACTIONS (4)
  - Blood glucose increased [Unknown]
  - Headache [Unknown]
  - Incorrect dose administered [Unknown]
  - Product storage error [Unknown]

NARRATIVE: CASE EVENT DATE: 20220712
